FAERS Safety Report 5342466-9 (Version None)
Quarter: 2007Q2

REPORT INFORMATION
  Report Type: 
  Country: None (occurrence: None)
  Receive Date: 20070601
  Receipt Date: 20070531
  Transmission Date: 20071010
  Serious: Yes (Death)
  Sender: FDA-Public Use
  Company Number: US-ASTRAZENECA-2006UW08269

PATIENT
  Age: 11419 Day
  Sex: Female
  Weight: 50 kg

DRUGS (8)
  1. SEROQUEL [Suspect]
     Indication: DEPRESSION
     Dosage: 25 MG - 300MG
     Route: 048
     Dates: start: 19990101
  2. ZYPREXA [Concomitant]
  3. XANAX [Concomitant]
  4. KLONOPIN [Concomitant]
  5. VALIUM [Concomitant]
  6. VICODIN [Concomitant]
  7. AUINZA [Concomitant]
  8. MOXIFEN [Concomitant]

REACTIONS (2)
  - DEATH [None]
  - DIABETES MELLITUS [None]
